FAERS Safety Report 10341207 (Version 2)
Quarter: 2014Q3

REPORT INFORMATION
  Report Type: Spontaneous
  Country: GB (occurrence: GB)
  Receive Date: 20140725
  Receipt Date: 20140804
  Transmission Date: 20150326
  Serious: Yes (Other)
  Sender: FDA-Public Use
  Company Number: GB-ROCHE-1440402

PATIENT
  Age: 35 Year
  Sex: Female
  Weight: 66.6 kg

DRUGS (2)
  1. KADCYLA [Suspect]
     Active Substance: ADO-TRASTUZUMAB EMTANSINE
     Indication: BREAST CANCER METASTATIC
     Route: 042
     Dates: start: 20140416
  2. DALTEPARIN [Concomitant]
     Active Substance: DALTEPARIN
     Indication: INTRACRANIAL VENOUS SINUS THROMBOSIS
     Route: 058
     Dates: start: 201307

REACTIONS (2)
  - Peptic ulcer haemorrhage [Recovering/Resolving]
  - Haemorrhage [Recovering/Resolving]

NARRATIVE: CASE EVENT DATE: 20140422
